FAERS Safety Report 23987889 (Version 1)
Quarter: 2024Q2

REPORT INFORMATION
  Report Type: Spontaneous
  Country: US (occurrence: US)
  Receive Date: 20240619
  Receipt Date: 20240619
  Transmission Date: 20240716
  Serious: No
  Sender: FDA-Public Use
  Company Number: US-STRIDES ARCOLAB LIMITED-2024SP006026

PATIENT
  Age: 9 Year
  Sex: Male

DRUGS (7)
  1. AZATHIOPRINE [Suspect]
     Active Substance: AZATHIOPRINE
     Indication: Immunodeficiency common variable
     Dosage: UNK
     Route: 065
  2. AZATHIOPRINE [Suspect]
     Active Substance: AZATHIOPRINE
     Indication: Interstitial lung disease
  3. MYCOPHENOLIC ACID [Suspect]
     Active Substance: MYCOPHENOLIC ACID
     Indication: Immunodeficiency common variable
     Dosage: UNK
     Route: 065
  4. Immunoglobulin [Concomitant]
     Indication: Immunodeficiency common variable
     Dosage: UNK
     Route: 065
  5. Immunoglobulin [Concomitant]
     Indication: Interstitial lung disease
  6. RITUXIMAB [Concomitant]
     Active Substance: RITUXIMAB
     Indication: Immunodeficiency common variable
     Dosage: UNK
     Route: 065
  7. RITUXIMAB [Concomitant]
     Active Substance: RITUXIMAB
     Indication: Interstitial lung disease

REACTIONS (2)
  - Drug intolerance [Unknown]
  - Off label use [Unknown]
